FAERS Safety Report 6517018-5 (Version None)
Quarter: 2009Q4

REPORT INFORMATION
  Report Type: 
  Country: None (occurrence: None)
  Receive Date: 20091223
  Receipt Date: 20091215
  Transmission Date: 20100525
  Serious: Yes (Other)
  Sender: FDA-Public Use
  Company Number: GXKR2009US13454

PATIENT
  Age: 50 Year
  Sex: Male

DRUGS (2)
  1. SIMVASTATIN [Suspect]
     Indication: HYPERCHOLESTEROLAEMIA
     Dosage: 80 MG/DAY
     Route: 065
     Dates: start: 20040701, end: 20041001
  2. SIMVASTATIN [Suspect]
     Indication: HYPERTRIGLYCERIDAEMIA

REACTIONS (4)
  - MUSCLE SPASMS [None]
  - MUSCULAR WEAKNESS [None]
  - MYALGIA [None]
  - MYOPATHY [None]
